FAERS Safety Report 8956183 (Version 1)
Quarter: 2012Q4

REPORT INFORMATION
  Report Type: 
  Country: US (occurrence: US)
  Receive Date: 20121210
  Receipt Date: 20121210
  Transmission Date: 20130627
  Serious: Yes (Other)
  Sender: FDA-Public Use
  Company Number: US-JNJFOC-2007328130

PATIENT
  Age: 42 Year
  Sex: Female
  Weight: 145.15 kg

DRUGS (8)
  1. MOTRIN [Suspect]
  2. MOTRIN [Suspect]
     Indication: PAIN
     Dosage: Daily Dose Text: 400 mg
  3. TYLENOL COLD HEAD CONGESTION SEVERE [Suspect]
     Indication: NASOPHARYNGITIS
     Dosage: Daily Dose Text: 2 DOSE(S)
     Dates: start: 20070731, end: 20070731
  4. NEXIUM [Concomitant]
     Indication: GASTROOESOPHAGEAL REFLUX DISEASE
  5. FERROUS SULFATE [Concomitant]
     Indication: ROUTINE HEALTH MAINTENANCE
  6. DETROL LA [Concomitant]
     Indication: BLADDER DISORDER
  7. HCTZ [Concomitant]
     Indication: DIURETIC THERAPY
  8. VOLTAREN [Concomitant]
     Indication: BLOOD PRESSURE

REACTIONS (5)
  - Pharyngeal oedema [Unknown]
  - Cyanosis [Unknown]
  - Chest pain [Unknown]
  - Dysarthria [Unknown]
  - Eye swelling [Unknown]
